FAERS Safety Report 15952454 (Version 7)
Quarter: 2023Q1

REPORT INFORMATION
  Report Type: Spontaneous
  Country: US (occurrence: US)
  Receive Date: 20190212
  Receipt Date: 20230320
  Transmission Date: 20230418
  Serious: No
  Sender: FDA-Public Use
  Company Number: US-PFIZER INC-2019063171

PATIENT
  Age: 67 Year
  Sex: Female

DRUGS (3)
  1. SOMAVERT [Suspect]
     Active Substance: PEGVISOMANT
     Dosage: 30 MG, DAILY
     Route: 058
     Dates: start: 20131016
  2. SOMAVERT [Suspect]
     Active Substance: PEGVISOMANT
     Dosage: 30 MG (7 WEEK)
  3. SOMAVERT [Suspect]
     Active Substance: PEGVISOMANT
     Dosage: 30 MG, ALTERNATE DAY

REACTIONS (8)
  - Peripheral swelling [Recovering/Resolving]
  - Insulin-like growth factor increased [Unknown]
  - Haematocrit decreased [Unknown]
  - Haemoglobin decreased [Unknown]
  - Blood chloride decreased [Unknown]
  - Blood creatinine increased [Unknown]
  - Glycosylated haemoglobin increased [Unknown]
  - Off label use [Unknown]
